FAERS Safety Report 14015891 (Version 1)
Quarter: 2017Q3

REPORT INFORMATION
  Report Type: Report from Study
  Country: CO (occurrence: CO)
  Receive Date: 20170927
  Receipt Date: 20170927
  Transmission Date: 20171128
  Serious: Yes (Hospitalization)
  Sender: FDA-Public Use
  Company Number: CO-JNJFOC-20170925370

PATIENT
  Sex: Female
  Weight: 70 kg

DRUGS (1)
  1. SIMPONI [Suspect]
     Active Substance: GOLIMUMAB
     Indication: ANKYLOSING SPONDYLITIS
     Route: 058
     Dates: start: 20170403

REACTIONS (3)
  - Helicobacter infection [Recovering/Resolving]
  - Ovarian cyst [Unknown]
  - Appendicectomy [Unknown]

NARRATIVE: CASE EVENT DATE: 2017
